FAERS Safety Report 9184363 (Version 1)
Quarter: 2013Q1

REPORT INFORMATION
  Report Type: Spontaneous
  Country: US (occurrence: US)
  Receive Date: 20130322
  Receipt Date: 20130322
  Transmission Date: 20140127
  Serious: Yes (Hospitalization)
  Sender: FDA-Public Use
  Company Number: US-ROCHE-1204940

PATIENT
  Age: 40 Year
  Sex: Male

DRUGS (1)
  1. XOLAIR [Suspect]
     Indication: ASTHMA
     Dosage: 450 UNK
     Route: 058
     Dates: start: 20120816, end: 20130305

REACTIONS (1)
  - Syncope [Recovered/Resolved]
